FAERS Safety Report 10495611 (Version 2)
Quarter: 2014Q4

REPORT INFORMATION
  Report Type: Spontaneous
  Country: BR (occurrence: BR)
  Receive Date: 20141003
  Receipt Date: 20141022
  Transmission Date: 20150528
  Serious: Yes (Death)
  Sender: FDA-Public Use
  Company Number: PHHY2014BR129360

PATIENT
  Age: 65 Year
  Sex: Male

DRUGS (2)
  1. TASIGNA [Suspect]
     Active Substance: NILOTINIB
     Indication: MYELOPROLIFERATIVE DISORDER
     Route: 065
  2. TASIGNA [Suspect]
     Active Substance: NILOTINIB
     Indication: OFF LABEL USE

REACTIONS (1)
  - Sepsis [Fatal]
